FAERS Safety Report 5899458-0 (Version None)
Quarter: 2008Q3

REPORT INFORMATION
  Report Type: 
  Country: None (occurrence: None)
  Receive Date: 20080926
  Receipt Date: 20080916
  Transmission Date: 20090109
  Serious: Yes (Other)
  Sender: FDA-Public Use
  Company Number: US-RANBAXY-2008US-17985

PATIENT

DRUGS (3)
  1. QUINAPRIL HCL [Suspect]
     Indication: BLOOD PRESSURE
     Dosage: UNK, UNK
     Dates: start: 20050101
  2. PLAVIX [Suspect]
     Indication: CEREBROVASCULAR ACCIDENT
     Dosage: 75 MG, UNK
     Route: 048
     Dates: start: 20050101
  3. HYDROCHLOROTHIAZIDE [Concomitant]
     Indication: DRUG USE FOR UNKNOWN INDICATION
     Dosage: 12.5 MG, QD

REACTIONS (5)
  - BLOOD PRESSURE INCREASED [None]
  - HAEMORRHAGE [None]
  - HYPERSENSITIVITY [None]
  - LIP SWELLING [None]
  - PAIN IN EXTREMITY [None]
